FAERS Safety Report 21632366 (Version 1)
Quarter: 2022Q4

REPORT INFORMATION
  Report Type: Report from Study
  Country: US (occurrence: US)
  Receive Date: 20221123
  Receipt Date: 20221123
  Transmission Date: 20230113
  Serious: No
  Sender: FDA-Public Use
  Company Number: US-ABBVIE-22K-163-4504131-00

PATIENT
  Sex: Female

DRUGS (1)
  1. RINVOQ [Suspect]
     Active Substance: UPADACITINIB
     Indication: Rheumatoid arthritis
     Dosage: ER
     Route: 048
     Dates: start: 20220601

REACTIONS (10)
  - Pharyngitis streptococcal [Unknown]
  - Upper respiratory tract infection [Recovered/Resolved]
  - Hyperhidrosis [Unknown]
  - Skin mass [Unknown]
  - Rheumatoid arthritis [Unknown]
  - Neuropathy peripheral [Unknown]
  - Chronic obstructive pulmonary disease [Unknown]
  - Hot flush [Unknown]
  - Musculoskeletal stiffness [Unknown]
  - Pain [Unknown]

NARRATIVE: CASE EVENT DATE: 20220101
